FAERS Safety Report 18714352 (Version 2)
Quarter: 2021Q2

REPORT INFORMATION
  Report Type: Report from Study
  Country: CN (occurrence: CN)
  Receive Date: 20210107
  Receipt Date: 20210405
  Transmission Date: 20210717
  Serious: Yes (Life-Threatening)
  Sender: FDA-Public Use
  Company Number: CN-DSJP-DSJ-2021-100003

PATIENT
  Age: 58 Year
  Sex: Male
  Weight: 73 kg

DRUGS (3)
  1. OLMESARTAN?AMLODIPINE [Suspect]
     Active Substance: AMLODIPINE BESYLATE\OLMESARTAN MEDOXOMIL
     Dosage: 20/5MG; DAILY
     Route: 048
     Dates: start: 20201213
  2. OLMESARTAN?AMLODIPINE [Suspect]
     Active Substance: AMLODIPINE BESYLATE\OLMESARTAN MEDOXOMIL
     Indication: ESSENTIAL HYPERTENSION
     Dosage: 20/5MG; DAILY
     Route: 048
     Dates: start: 20201203, end: 20201204
  3. OLMESARTAN?AMLODIPINE [Suspect]
     Active Substance: AMLODIPINE BESYLATE\OLMESARTAN MEDOXOMIL
     Dosage: 10/2.5MG; DAILY
     Route: 048
     Dates: start: 20201210, end: 20201212

REACTIONS (3)
  - Medication error [Unknown]
  - Orthostatic hypotension [Recovered/Resolved]
  - Orthostatic hypotension [Recovered/Resolved]

NARRATIVE: CASE EVENT DATE: 20201204
